FAERS Safety Report 9730339 (Version 1)
Quarter: 2013Q4

REPORT INFORMATION
  Report Type: Report from Study
  Country: DE (occurrence: DE)
  Receive Date: 20131204
  Receipt Date: 20131204
  Transmission Date: 20140711
  Serious: Yes (Death)
  Sender: FDA-Public Use
  Company Number: DE-ROCHE-1308462

PATIENT
  Age: 62 Year
  Sex: Female
  Weight: 89 kg

DRUGS (1)
  1. BEVACIZUMAB [Suspect]
     Indication: OVARIAN CANCER
     Dosage: TOTALL OF 7 TIMES
     Route: 042
     Dates: start: 20130424, end: 20130924

REACTIONS (2)
  - Lung disorder [Fatal]
  - Malignant neoplasm progression [Fatal]
